FAERS Safety Report 21669663 (Version 1)
Quarter: 2022Q4

REPORT INFORMATION
  Report Type: Spontaneous
  Country: US (occurrence: None)
  Receive Date: 20221201
  Receipt Date: 20221201
  Transmission Date: 20230113
  Serious: Yes (Life-Threatening)
  Sender: FDA-Public Use
  Company Number: None

PATIENT
  Age: 65 Year
  Sex: Female
  Weight: 72 kg

DRUGS (2)
  1. EPINEPHRINE\LIDOCAINE [Suspect]
     Active Substance: EPINEPHRINE\LIDOCAINE
     Dosage: OTHER FREQUENCY : 1;?
     Route: 058
     Dates: start: 20220629, end: 20220629
  2. EPINEPHRINE\LIDOCAINE [Suspect]
     Active Substance: EPINEPHRINE\LIDOCAINE
     Dosage: OTHER FREQUENCY : 1;?
     Route: 058
     Dates: start: 20220629, end: 20220629

REACTIONS (2)
  - Near death experience [None]
  - Product quality issue [None]

NARRATIVE: CASE EVENT DATE: 20220629
